FAERS Safety Report 19506982 (Version 1)
Quarter: 2021Q3

REPORT INFORMATION
  Report Type: Spontaneous
  Country: US (occurrence: US)
  Receive Date: 20210708
  Receipt Date: 20210708
  Transmission Date: 20211014
  Serious: No
  Sender: FDA-Public Use
  Company Number: None

PATIENT
  Age: 89 Year
  Sex: Female
  Weight: 54.9 kg

DRUGS (4)
  1. NEXLETOL [Suspect]
     Active Substance: BEMPEDOIC ACID
     Indication: BLOOD CHOLESTEROL INCREASED
     Dosage: ?          QUANTITY:1 TABLET(S);?
     Route: 048
  2. ATORVASTATIN [Concomitant]
     Active Substance: ATORVASTATIN
  3. BENICAR [Suspect]
     Active Substance: OLMESARTAN MEDOXOMIL
  4. BRILINTA [Concomitant]
     Active Substance: TICAGRELOR

REACTIONS (3)
  - Rash [None]
  - Therapy change [None]
  - Skin reaction [None]

NARRATIVE: CASE EVENT DATE: 20210501
